FAERS Safety Report 10398566 (Version 3)
Quarter: 2014Q4

REPORT INFORMATION
  Report Type: Report from Study
  Country: BR (occurrence: BR)
  Receive Date: 20140821
  Receipt Date: 20141029
  Transmission Date: 20150528
  Serious: Yes (Other)
  Sender: FDA-Public Use
  Company Number: PHHY2014BR102516

PATIENT
  Sex: Female
  Weight: 85 kg

DRUGS (18)
  1. SANDOSTATIN LAR DEPOT [Suspect]
     Active Substance: OCTREOTIDE ACETATE
     Indication: ACROMEGALY
     Dosage: 30MG, EACH 6 WEEKS
     Route: 030
  2. AMITRIPTYLINE [Concomitant]
     Active Substance: AMITRIPTYLINE
     Indication: NERVOUS SYSTEM DISORDER
     Dosage: 1 DF, QD (AT NIGHT)
     Route: 048
  3. SANDOSTATIN LAR DEPOT [Suspect]
     Active Substance: OCTREOTIDE ACETATE
     Dosage: 20 MG, EACH 6 WEEKS
     Route: 030
  4. CARBAMAZEPINE. [Concomitant]
     Active Substance: CARBAMAZEPINE
     Indication: SEIZURE
     Dosage: 2 DF, TID (2 IN THE MORNING, 2 IN THE AFTERNOON, 2 AT NIGHT)
     Route: 048
  5. URBANIL [Concomitant]
     Active Substance: CLOBAZAM
     Indication: ANXIETY
  6. URBANIL [Concomitant]
     Active Substance: CLOBAZAM
     Indication: NERVOUS SYSTEM DISORDER
     Dosage: 1 DF, BID (ONE IN THE MORNING, ONE AT NIGHT)
     Route: 048
  7. OMEPRAZOLE. [Concomitant]
     Active Substance: OMEPRAZOLE
     Indication: RETCHING
  8. AMITRIPTYLINE HYDROCHLORIDE. [Concomitant]
     Active Substance: AMITRIPTYLINE HYDROCHLORIDE
     Indication: DEPRESSION
     Dosage: 1 DF, QD (AT NIGHT)
     Route: 065
  9. PURAN [Concomitant]
     Active Substance: LEVOTHYROXINE SODIUM
     Indication: ENDOCRINE DISORDER
     Dosage: 1 DF, QD (IN FASTING)
     Route: 048
  10. PREDNISONE. [Concomitant]
     Active Substance: PREDNISONE
     Indication: INFECTION PROPHYLAXIS
  11. OMEPRAZOLE. [Concomitant]
     Active Substance: OMEPRAZOLE
     Indication: ENDOCRINE DISORDER
     Dosage: 1 DF, QD (AT NIGHT)
     Route: 048
  12. PREDNISONE. [Concomitant]
     Active Substance: PREDNISONE
     Indication: ENDOCRINE DISORDER
     Dosage: 0.5 DF, QD (IN THE MORNING)
     Route: 048
  13. ENALAPRIL [Concomitant]
     Active Substance: ENALAPRIL
     Indication: BLOOD PRESSURE ABNORMAL
     Dosage: 2 DF, BID (2 IN THE MORNING, 2 AT NIGHT)
     Route: 048
  14. SANDOSTATIN LAR DEPOT [Suspect]
     Active Substance: OCTREOTIDE ACETATE
     Dosage: 20 MG, EACH 5 WEEKS
     Route: 030
  15. CARBAMAZEPINE. [Concomitant]
     Active Substance: CARBAMAZEPINE
     Indication: NERVOUS SYSTEM DISORDER
     Dosage: 1 DF, UNK
     Route: 048
  16. SIMVASTATIN. [Concomitant]
     Active Substance: SIMVASTATIN
     Indication: ENDOCRINE DISORDER
     Dosage: 1 DF, QD (AT NIGHT)
     Route: 048
  17. SIMVASTATIN. [Concomitant]
     Active Substance: SIMVASTATIN
     Indication: CARDIAC DISORDER
  18. ENALAPRIL [Concomitant]
     Active Substance: ENALAPRIL
     Indication: HYPERTENSION

REACTIONS (20)
  - Labyrinthitis [Recovering/Resolving]
  - Hypokinesia [Recovered/Resolved]
  - Acute sinusitis [Not Recovered/Not Resolved]
  - Memory impairment [Not Recovered/Not Resolved]
  - Anxiety [Unknown]
  - Retching [Not Recovered/Not Resolved]
  - Motor dysfunction [Recovered/Resolved]
  - Weight increased [Not Recovered/Not Resolved]
  - Epilepsy [Recovering/Resolving]
  - Daydreaming [Recovering/Resolving]
  - Eating disorder [Not Recovered/Not Resolved]
  - Weight decreased [Unknown]
  - Gait disturbance [Recovered/Resolved]
  - Hypertension [Unknown]
  - Visual impairment [Recovering/Resolving]
  - Reading disorder [Recovering/Resolving]
  - Vision blurred [Recovering/Resolving]
  - Tremor [Recovering/Resolving]
  - Anaemia [Unknown]
  - Dizziness [Recovering/Resolving]
